FAERS Safety Report 22203741 (Version 2)
Quarter: 2023Q2

REPORT INFORMATION
  Report Type: Spontaneous
  Country: US (occurrence: US)
  Receive Date: 20230412
  Receipt Date: 20230503
  Transmission Date: 20230722
  Serious: Yes (Hospitalization, Other)
  Sender: FDA-Public Use
  Company Number: US-HORIZON THERAPEUTICS-HZN-2023-002596

PATIENT

DRUGS (4)
  1. KRYSTEXXA [Suspect]
     Active Substance: PEGLOTICASE
     Indication: Product used for unknown indication
     Dosage: FIRST DOSE
     Route: 065
     Dates: start: 202112
  2. KRYSTEXXA [Suspect]
     Active Substance: PEGLOTICASE
     Dosage: THERAPY COMPLETED IN NOV2022
     Route: 065
     Dates: start: 202211, end: 202211
  3. ULORIC [Concomitant]
     Active Substance: FEBUXOSTAT
     Route: 065
  4. PREDNISONE [Concomitant]
     Active Substance: PREDNISONE
     Route: 065

REACTIONS (5)
  - Gout [Unknown]
  - Pulmonary embolism [Unknown]
  - Myocardial infarction [Unknown]
  - Thrombosis [Unknown]
  - Troponin increased [Unknown]

NARRATIVE: CASE EVENT DATE: 20221201
